FAERS Safety Report 9444980 (Version 1)
Quarter: 2013Q3

REPORT INFORMATION
  Report Type: Spontaneous
  Country: GB (occurrence: None)
  Receive Date: 20130729
  Receipt Date: 20130729
  Transmission Date: 20140515
  Serious: Yes (Hospitalization)
  Sender: FDA-Public Use
  Company Number: BTG00078

PATIENT
  Age: 78 Year
  Sex: Male

DRUGS (2)
  1. DIGIFAB [Suspect]
     Indication: JAUNDICE CHOLESTATIC
     Dosage: 5 VIALS
     Dates: start: 20130716
  2. DIGOXIN (DIGOXIN) [Suspect]
     Indication: PRODUCT USED FOR UNKNOWN INDICATION

REACTIONS (11)
  - Agitation [None]
  - Drug effect incomplete [None]
  - Toxicity to various agents [None]
  - Hyperkalaemia [None]
  - Mental status changes [None]
  - Visual impairment [None]
  - Gastrointestinal disorder [None]
  - Atrioventricular block second degree [None]
  - Atrioventricular block complete [None]
  - Confusional state [None]
  - Cardioactive drug level increased [None]
